FAERS Safety Report 17877550 (Version 1)
Quarter: 2020Q2

REPORT INFORMATION
  Report Type: Spontaneous
  Country: US (occurrence: US)
  Receive Date: 20200609
  Receipt Date: 20200609
  Transmission Date: 20200714
  Serious: No
  Sender: FDA-Public Use
  Company Number: US-BRACCO-2019US02984

PATIENT
  Age: 16 Year
  Sex: Female

DRUGS (2)
  1. SODIUM CHLORIDE. [Concomitant]
     Active Substance: SODIUM CHLORIDE
     Dosage: UNK
     Route: 014
     Dates: start: 20190523, end: 20190523
  2. PROHANCE [Suspect]
     Active Substance: GADOTERIDOL
     Indication: ARTHROGRAM
     Dosage: 2 ML, SINGLE
     Route: 014
     Dates: start: 20190523, end: 20190523

REACTIONS (5)
  - Drug ineffective [Unknown]
  - Off label use [Unknown]
  - No adverse event [Unknown]
  - Intentional product use issue [Unknown]
  - Product preparation error [Unknown]

NARRATIVE: CASE EVENT DATE: 20190523
